FAERS Safety Report 8373957-4 (Version None)
Quarter: 2012Q2

REPORT INFORMATION
  Report Type: 
  Country: None (occurrence: None)
  Receive Date: 20120521
  Receipt Date: 20120514
  Transmission Date: 20120825
  Serious: Yes (Other)
  Sender: FDA-Public Use
  Company Number: PHHY2012BR041886

PATIENT
  Sex: Female
  Weight: 67 kg

DRUGS (3)
  1. CAPTOPRIL [Suspect]
     Route: 048
  2. CODEINE MANIPULATED [Suspect]
     Route: 048
  3. ENALAPRIL MALEATE [Suspect]
     Route: 048

REACTIONS (5)
  - GASTROINTESTINAL HYPOMOTILITY [None]
  - EATING DISORDER [None]
  - INCREASED UPPER AIRWAY SECRETION [None]
  - NAUSEA [None]
  - DIABETES MELLITUS [None]
